FAERS Safety Report 20593459 (Version 1)
Quarter: 2022Q1

REPORT INFORMATION
  Report Type: Spontaneous
  Country: CA (occurrence: CA)
  Receive Date: 20220315
  Receipt Date: 20220315
  Transmission Date: 20220423
  Serious: Yes (Other)
  Sender: FDA-Public Use
  Company Number: CA-BoehringerIngelheim-2022-BI-158220

PATIENT
  Sex: Male

DRUGS (8)
  1. PRAMIPEXOLE [Suspect]
     Active Substance: PRAMIPEXOLE
     Indication: Head titubation
  2. ROPINIROLE [Suspect]
     Active Substance: ROPINIROLE
     Indication: Head titubation
  3. AMANTADINE [Suspect]
     Active Substance: AMANTADINE
     Indication: Head titubation
  4. TRIHEXYPHENIDYL [Suspect]
     Active Substance: TRIHEXYPHENIDYL
     Indication: Head titubation
  5. CLONAZEPAM [Suspect]
     Active Substance: CLONAZEPAM
     Indication: Tremor
  6. PRIMIDONE [Suspect]
     Active Substance: PRIMIDONE
     Indication: Tremor
  7. GABAPENTIN [Suspect]
     Active Substance: GABAPENTIN
     Indication: Tremor
  8. PROPRANOLOL [Suspect]
     Active Substance: PROPRANOLOL HYDROCHLORIDE
     Indication: Tremor

REACTIONS (5)
  - Hallucination [Unknown]
  - Drug ineffective [Unknown]
  - Oedema peripheral [Unknown]
  - Therapeutic response decreased [Unknown]
  - Somnolence [Unknown]
